FAERS Safety Report 10993309 (Version 1)
Quarter: 2015Q2

REPORT INFORMATION
  Report Type: Spontaneous
  Country: CA (occurrence: CA)
  Receive Date: 20150407
  Receipt Date: 20150407
  Transmission Date: 20150821
  Serious: Yes (Other)
  Sender: FDA-Public Use
  Company Number: CA-ROCHE-1559456

PATIENT
  Sex: Male

DRUGS (3)
  1. CHAMPIX [Suspect]
     Active Substance: VARENICLINE TARTRATE
     Indication: EX-TOBACCO USER
     Route: 065
     Dates: start: 201410, end: 201411
  2. CLONAZEPAM. [Suspect]
     Active Substance: CLONAZEPAM
     Indication: ANXIETY
     Route: 065
  3. CITALOPRAM [Suspect]
     Active Substance: CITALOPRAM HYDROBROMIDE
     Indication: PRODUCT USED FOR UNKNOWN INDICATION
     Route: 065
     Dates: start: 20150323

REACTIONS (7)
  - Limb injury [Unknown]
  - Panic attack [Unknown]
  - Anxiety [Unknown]
  - Headache [Unknown]
  - Myocardial infarction [Unknown]
  - Drug ineffective [Unknown]
  - Emotional distress [Unknown]

NARRATIVE: CASE EVENT DATE: 201412
